FAERS Safety Report 16872733 (Version 2)
Quarter: 2019Q4

REPORT INFORMATION
  Report Type: Report from Study
  Country: GB (occurrence: GB)
  Receive Date: 20191001
  Receipt Date: 20191008
  Transmission Date: 20200122
  Serious: Yes (Other)
  Sender: FDA-Public Use
  Company Number: GB-TEVA-2019-GB-1114509

PATIENT
  Age: 28 Year
  Sex: Female

DRUGS (1)
  1. COPAXONE [Suspect]
     Active Substance: GLATIRAMER ACETATE
     Indication: MULTIPLE SCLEROSIS
     Dosage: PRE-FILLED SYRINGE
     Route: 058
     Dates: start: 201906, end: 20190827

REACTIONS (4)
  - Dyspnoea [Unknown]
  - Injection related reaction [Unknown]
  - Immediate post-injection reaction [Unknown]
  - Swelling face [Unknown]

NARRATIVE: CASE EVENT DATE: 20190827
